FAERS Safety Report 10745298 (Version 1)
Quarter: 2015Q1

REPORT INFORMATION
  Report Type: Spontaneous
  Country: HU (occurrence: HU)
  Receive Date: 20150128
  Receipt Date: 20150128
  Transmission Date: 20150721
  Serious: Yes (Death, Hospitalization)
  Sender: FDA-Public Use
  Company Number: HU-ACTELION-A-CH2015-111736

PATIENT
  Age: 20 Year
  Sex: Female

DRUGS (1)
  1. TRACLEER [Suspect]
     Active Substance: BOSENTAN\BOSENTAN MONOHYDRATE
     Indication: PULMONARY ARTERIAL HYPERTENSION
     Dosage: 125 MG, BID
     Route: 048
     Dates: start: 201207

REACTIONS (5)
  - Cardiac failure [Fatal]
  - Endocarditis [Fatal]
  - Pneumonia [Fatal]
  - White blood cell count increased [Fatal]
  - Septic shock [Fatal]

NARRATIVE: CASE EVENT DATE: 20150112
